FAERS Safety Report 9371061 (Version 1)
Quarter: 2013Q2

REPORT INFORMATION
  Report Type: Report from Study
  Country: FR (occurrence: FR)
  Receive Date: 20130627
  Receipt Date: 20130627
  Transmission Date: 20140414
  Serious: Yes (Death)
  Sender: FDA-Public Use
  Company Number: FR-ROCHE-1241732

PATIENT
  Sex: Male

DRUGS (27)
  1. RITUXIMAB [Suspect]
     Indication: B-CELL LYMPHOMA
     Dosage: TOTAL ADMINISTERED DOSE 685 MG
     Route: 065
     Dates: start: 20080214
  2. RITUXIMAB [Suspect]
     Dosage: TOTAL ADMINISTERED DOSE 685 MG
     Route: 065
     Dates: start: 20080313
  3. RITUXIMAB [Suspect]
     Dosage: TOTAL ADMINISTERED DOSE 685 MG
     Route: 065
     Dates: start: 20080403
  4. RITUXIMAB [Suspect]
     Dosage: TOTAL ADMINISTERED DOSE 685 MG
     Route: 065
     Dates: start: 20080424
  5. RITUXIMAB [Suspect]
     Dosage: TOTAL ADMINISTERED DOSE 685 MG
     Route: 065
     Dates: start: 20080515
  6. RITUXIMAB [Suspect]
     Dosage: TOTAL ADMINISTERED DOSE 685 MG
     Route: 065
     Dates: start: 20080605
  7. RITUXIMAB [Suspect]
     Dosage: TOTAL ADMINISTERED DOSE 685 MG
     Route: 065
     Dates: start: 20080626
  8. RITUXIMAB [Suspect]
     Dosage: TOTAL ADMINISTERED DOSE 685 MG
     Route: 065
     Dates: start: 20080717
  9. RITUXIMAB [Suspect]
     Route: 065
     Dates: start: 20081009
  10. CYCLOPHOSPHAMIDE [Suspect]
     Indication: B-CELL LYMPHOMA
     Dosage: TOTAL ADMINISTERED DOSE 1370 MG
     Route: 065
     Dates: start: 20080214
  11. CYCLOPHOSPHAMIDE [Suspect]
     Dosage: TOTAL ADMINISTERED DOSE 1370 MG
     Route: 065
     Dates: start: 20080313
  12. CYCLOPHOSPHAMIDE [Suspect]
     Dosage: TOTAL ADMINISTERED DOSE 1370 MG
     Route: 065
     Dates: start: 20080403
  13. CYCLOPHOSPHAMIDE [Suspect]
     Dosage: TOTAL ADMINISTERED DOSE 1370 MG
     Route: 065
     Dates: start: 20080424
  14. CYCLOPHOSPHAMIDE [Suspect]
     Dosage: TOTAL ADMINISTERED DOSE 1370 MG
     Route: 065
     Dates: start: 20080515
  15. CYCLOPHOSPHAMIDE [Suspect]
     Dosage: TOTAL ADMINISTERED DOSE 1370 MG
     Route: 065
     Dates: start: 20080605
  16. DOXORUBICINE [Suspect]
     Indication: B-CELL LYMPHOMA
     Dosage: TOTAL ADMINISTERED DOSE 91 MG
     Route: 065
     Dates: start: 20080214
  17. DOXORUBICINE [Suspect]
     Dosage: TOTAL ADMINISTERED DOSE 91 MG
     Route: 065
     Dates: start: 20080313
  18. DOXORUBICINE [Suspect]
     Dosage: TOTAL ADMINISTERED DOSE 91 MG
     Route: 065
     Dates: start: 20080403
  19. DOXORUBICINE [Suspect]
     Dosage: TOTAL ADMINISTERED DOSE 91 MG
     Route: 065
     Dates: start: 20080424
  20. DOXORUBICINE [Suspect]
     Dosage: TOTAL ADMINISTERED DOSE 91 MG
     Route: 065
     Dates: start: 20080515
  21. DOXORUBICINE [Suspect]
     Dosage: TOTAL ADMINISTERED DOSE 91 MG
     Route: 065
     Dates: start: 20080605
  22. VINCRISTINE [Suspect]
     Indication: B-CELL LYMPHOMA
     Dosage: TOTAL ADMINISTERED DOSE 2 MG
     Route: 065
     Dates: start: 20080214
  23. VINCRISTINE [Suspect]
     Dosage: TOTAL ADMINISTERED DOSE 2 MG
     Route: 065
     Dates: start: 20080313
  24. VINCRISTINE [Suspect]
     Dosage: TOTAL ADMINISTERED DOSE 2 MG
     Route: 065
     Dates: start: 20080403
  25. VINCRISTINE [Suspect]
     Dosage: TOTAL ADMINISTERED DOSE 2 MG
     Route: 065
     Dates: start: 20080424
  26. VINCRISTINE [Suspect]
     Dosage: TOTAL ADMINISTERED DOSE 2 MG
     Route: 065
     Dates: start: 20080515
  27. VINCRISTINE [Suspect]
     Dosage: TOTAL ADMINISTERED DOSE 2 MG
     Route: 065
     Dates: start: 20080605

REACTIONS (1)
  - Adenocarcinoma [Fatal]
